FAERS Safety Report 7775256-8 (Version None)
Quarter: 2011Q3

REPORT INFORMATION
  Report Type: 
  Country: None (occurrence: None)
  Receive Date: 20110923
  Receipt Date: 20110914
  Transmission Date: 20111222
  Serious: Yes (Other)
  Sender: FDA-Public Use
  Company Number: GB-JNJFOC-20110908447

PATIENT
  Sex: Female

DRUGS (3)
  1. HORMONES NOS [Suspect]
     Indication: HORMONE REPLACEMENT THERAPY
  2. RIVAROXABAN [Suspect]
     Route: 048
  3. RIVAROXABAN [Suspect]
     Indication: THROMBOSIS PROPHYLAXIS
     Route: 048
     Dates: start: 20100101

REACTIONS (1)
  - PULMONARY EMBOLISM [None]
